FAERS Safety Report 17440616 (Version 1)
Quarter: 2020Q1

REPORT INFORMATION
  Report Type: Spontaneous
  Country: US (occurrence: US)
  Receive Date: 20200220
  Receipt Date: 20200220
  Transmission Date: 20200409
  Serious: Yes (Life-Threatening, Hospitalization, Other)
  Sender: FDA-Public Use
  Company Number: None

PATIENT
  Age: 72 Year
  Sex: Male
  Weight: 93.15 kg

DRUGS (5)
  1. RISPERIDONE 3 MG HS [Concomitant]
     Dates: start: 20200130
  2. HARVONI [Suspect]
     Active Substance: LEDIPASVIR\SOFOSBUVIR
     Indication: HEPATITIS C
     Dates: start: 20200130, end: 20200212
  3. FAMOTIDINE 20 MG BID [Concomitant]
     Dates: start: 20200130
  4. VITAMIN D 10,000 UNITS BID [Concomitant]
     Dates: start: 20200130
  5. METOPROLOL 12.5 MG BID [Concomitant]
     Dates: start: 20200130

REACTIONS (2)
  - Asthenia [None]
  - Fatigue [None]

NARRATIVE: CASE EVENT DATE: 20200212
